FAERS Safety Report 7458453-0 (Version None)
Quarter: 2011Q2

REPORT INFORMATION
  Report Type: 
  Country: None (occurrence: None)
  Receive Date: 20110504
  Receipt Date: 20110426
  Transmission Date: 20111010
  Serious: Yes (Life-Threatening, Hospitalization)
  Sender: FDA-Public Use
  Company Number: B0716449A

PATIENT
  Sex: Female
  Weight: 43 kg

DRUGS (15)
  1. KYTRIL [Concomitant]
     Dosage: 4MG PER DAY
     Route: 042
     Dates: end: 20100228
  2. FLUDARA [Suspect]
     Indication: CORD BLOOD TRANSPLANT THERAPY
     Dosage: 41MGM2 PER DAY
     Route: 042
     Dates: start: 20100222, end: 20100227
  3. ALKERAN [Suspect]
     Indication: CORD BLOOD TRANSPLANT THERAPY
     Dosage: 60MGM2 PER DAY
     Route: 042
     Dates: start: 20100226, end: 20100228
  4. BUSULFAN [Suspect]
     Dosage: 68.4MG PER DAY
     Route: 042
     Dates: start: 20100222, end: 20100223
  5. BACCIDAL [Concomitant]
     Dosage: 500MG PER DAY
     Route: 048
  6. VFEND [Concomitant]
     Dosage: 140MG PER DAY
     Route: 042
     Dates: end: 20100407
  7. AMPHOTERICIN B [Concomitant]
     Dosage: 4ML PER DAY
     Route: 048
  8. BUSULFAN [Suspect]
     Indication: CORD BLOOD TRANSPLANT THERAPY
     Dosage: 102.6MG PER DAY
     Route: 042
     Dates: start: 20100220, end: 20100220
  9. BUSULFAN [Suspect]
     Dosage: 136.8MG PER DAY
     Route: 042
     Dates: start: 20100221, end: 20100221
  10. CYCLOSPORINE [Concomitant]
     Indication: IMMUNOSUPPRESSION
     Dosage: 80MG PER DAY
     Route: 065
     Dates: start: 20100303, end: 20100309
  11. DIAMOX [Concomitant]
     Dosage: 750MG PER DAY
     Dates: end: 20100301
  12. URSO 250 [Concomitant]
     Dosage: 150MG PER DAY
     Route: 048
  13. METHOTREXATE [Concomitant]
     Indication: IMMUNOSUPPRESSION
     Dosage: 13MG PER DAY
     Route: 065
     Dates: start: 20100303, end: 20100308
  14. VICCLOX [Concomitant]
     Dosage: 600MG PER DAY
     Route: 042
     Dates: end: 20100331
  15. ALLOPURINOL [Concomitant]
     Dosage: 300MG PER DAY
     Route: 048
     Dates: end: 20100301

REACTIONS (4)
  - PANCREATITIS ACUTE [None]
  - ABDOMINAL PAIN [None]
  - BLOOD PRESSURE DECREASED [None]
  - ANAPHYLACTIC REACTION [None]
